FAERS Safety Report 4332714-6 (Version None)
Quarter: 2004Q1

REPORT INFORMATION
  Report Type: 
  Country: None (occurrence: None)
  Receive Date: 20040330
  Receipt Date: 20040316
  Transmission Date: 20041129
  Serious: Yes (Hospitalization, Other)
  Sender: FDA-Public Use
  Company Number: NSADSS2002003834

PATIENT
  Age: 38 Year
  Sex: Female
  Weight: 54.4316 kg

DRUGS (5)
  1. REMICADE [Suspect]
     Indication: CROHN'S DISEASE
     Dosage: , 1 IN 1 AS NECESSARY, INTRAVENOUS DRIP
     Route: 041
     Dates: start: 20011027, end: 20011027
  2. REMICADE [Suspect]
     Indication: RHEUMATOID ARTHRITIS
     Dosage: , 1 IN 1 AS NECESSARY, INTRAVENOUS DRIP
     Route: 041
     Dates: start: 20011224, end: 20011224
  3. METHOTREXATE [Suspect]
     Indication: CROHN'S DISEASE
     Dosage: 10 MG, 1 IN 1, WEEK
  4. PREDNISONE [Concomitant]
  5. TRAZODONE HCL [Concomitant]

REACTIONS (11)
  - ARTHRITIS [None]
  - ASTHENIA [None]
  - DIZZINESS [None]
  - DRUG TOLERANCE DECREASED [None]
  - DYSPNOEA [None]
  - ERYTHEMA [None]
  - FEELING ABNORMAL [None]
  - GALLBLADDER DISORDER [None]
  - HEPATIC ENZYME INCREASED [None]
  - INFUSION RELATED REACTION [None]
  - PAIN [None]
